FAERS Safety Report 6345521-X (Version None)
Quarter: 2009Q3

REPORT INFORMATION
  Report Type: 
  Country: None (occurrence: None)
  Receive Date: 20090909
  Receipt Date: 20090904
  Transmission Date: 20100115
  Serious: Yes (Other)
  Sender: FDA-Public Use
  Company Number: FR-BRISTOL-MYERS SQUIBB COMPANY-14768899

PATIENT

DRUGS (1)
  1. ORENCIA [Suspect]
     Dosage: EVENT OCCURRED AAFTER AROUND 10 INFUSIONS

REACTIONS (1)
  - EOSINOPHILIA [None]
